FAERS Safety Report 4355216-X (Version None)
Quarter: 2004Q2

REPORT INFORMATION
  Report Type: 
  Country: None (occurrence: None)
  Receive Date: 20040504
  Receipt Date: 20040423
  Transmission Date: 20050107
  Serious: Yes (Life-Threatening)
  Sender: FDA-Public Use
  Company Number: 206075

PATIENT
  Age: 77 Year
  Sex: Female

DRUGS (3)
  1. ACTILYSE (ALTEPLASE) PWDR + SOLVENT, INFUSION SOLN [Suspect]
     Indication: CEREBROVASCULAR ACCIDENT
     Dosage: 70 MG, INTRAVENOUS
     Route: 042
     Dates: start: 20040419, end: 20040419
  2. EBRANTIL (URAPIDIL) [Concomitant]
  3. ACTRAPID (INSULIN) [Concomitant]

REACTIONS (3)
  - ANAPHYLACTIC REACTION [None]
  - ANGIONEUROTIC OEDEMA [None]
  - TONGUE OEDEMA [None]
